FAERS Safety Report 10009799 (Version 2)
Quarter: 2014Q1

REPORT INFORMATION
  Report Type: Spontaneous
  Country: US (occurrence: US)
  Receive Date: 20140312
  Receipt Date: 20140312
  Transmission Date: 20141002
  Serious: No
  Sender: FDA-Public Use
  Company Number: US-INCYTE CORPORATION-2013IN000279

PATIENT
  Age: 80 Year
  Sex: Male
  Weight: 74.83 kg

DRUGS (2)
  1. JAKAFI [Suspect]
     Indication: MYELOFIBROSIS
     Dosage: 20 MG, BID
     Route: 048
     Dates: start: 201212
  2. JAKAFI [Suspect]
     Dosage: 20 MG, QD
     Route: 048

REACTIONS (2)
  - White blood cell count decreased [Unknown]
  - Abdominal distension [Unknown]
